FAERS Safety Report 14463457 (Version 2)
Quarter: 2019Q1

REPORT INFORMATION
  Report Type: Other
  Country: US (occurrence: US)
  Receive Date: 20180130
  Receipt Date: 20190126
  Transmission Date: 20190417
  Serious: No
  Sender: FDA-Public Use
  Company Number: US-ACORDA-ACO_133557_2017

PATIENT
  Sex: Female

DRUGS (1)
  1. AMPYRA [Suspect]
     Active Substance: DALFAMPRIDINE
     Indication: PRODUCT USED FOR UNKNOWN INDICATION
     Dosage: 10 MG, BID
     Route: 048
     Dates: start: 20100609

REACTIONS (5)
  - General physical health deterioration [Recovered/Resolved]
  - Gait disturbance [Unknown]
  - Gait inability [Unknown]
  - Therapy cessation [Recovered/Resolved]
  - Product dose omission [Unknown]
